FAERS Safety Report 8365679-0 (Version None)
Quarter: 2012Q2

REPORT INFORMATION
  Report Type: 
  Country: None (occurrence: None)
  Receive Date: 20120516
  Receipt Date: 20120504
  Transmission Date: 20120825
  Serious: Yes (Hospitalization)
  Sender: FDA-Public Use
  Company Number: FR-BRISTOL-MYERS SQUIBB COMPANY-16580128

PATIENT
  Age: 44 Year
  Sex: Male

DRUGS (4)
  1. ZYPREXA [Concomitant]
  2. NORVIR [Concomitant]
  3. TRUVADA [Suspect]
     Indication: HIV INFECTION
     Dosage: INITIATED 4YEARS AGO
     Route: 048
     Dates: start: 20071115, end: 20120229
  4. REYATAZ [Suspect]
     Indication: HIV INFECTION
     Dosage: INITIATED 4YEARS AGO
     Route: 048
     Dates: start: 20071115, end: 20120229

REACTIONS (2)
  - FANCONI SYNDROME ACQUIRED [None]
  - RENAL IMPAIRMENT [None]
